FAERS Safety Report 18484686 (Version 1)
Quarter: 2020Q4

REPORT INFORMATION
  Report Type: Other
  Country: US (occurrence: US)
  Receive Date: 20201110
  Receipt Date: 20201110
  Transmission Date: 20210114
  Serious: Yes (Other)
  Sender: FDA-Public Use
  Company Number: US-ROCHE-2707702

PATIENT
  Age: 62 Year
  Sex: Male

DRUGS (4)
  1. OCREVUS [Suspect]
     Active Substance: OCRELIZUMAB
     Indication: PRIMARY PROGRESSIVE MULTIPLE SCLEROSIS
     Dosage: ON 12/SEP/2020, RECEIVED OCRELIZUMAB OF AN UNKNOWN DOSAGE FORM.
     Route: 042
     Dates: start: 20200304
  2. OCREVUS [Suspect]
     Active Substance: OCRELIZUMAB
     Dosage: 300 MG ONCE IN 2 WEEK, THEN 600 MG ONCE IN 6 MONTHS.
     Route: 042
     Dates: start: 20200219
  3. ANTIHISTAMINE (UNK INGREDIENTS) [Concomitant]
     Indication: PREMEDICATION
  4. STEROID (UNK INGREDIENTS) [Concomitant]
     Indication: PREMEDICATION

REACTIONS (3)
  - Wound infection [Recovered/Resolved]
  - Burning sensation [Recovered/Resolved]
  - Joint injury [Unknown]

NARRATIVE: CASE EVENT DATE: 20200912
